FAERS Safety Report 7040176-3 (Version None)
Quarter: 2010Q4

REPORT INFORMATION
  Report Type: 
  Country: None (occurrence: None)
  Receive Date: 20101012
  Receipt Date: 20101001
  Transmission Date: 20110411
  Serious: Yes (Other)
  Sender: FDA-Public Use
  Company Number: AU-JNJFOC-20101000678

PATIENT
  Sex: Female
  Weight: 74 kg

DRUGS (19)
  1. GOLIMUMAB [Suspect]
     Indication: RHEUMATOID ARTHRITIS
     Route: 058
  2. GOLIMUMAB [Suspect]
     Route: 058
  3. GOLIMUMAB [Suspect]
     Route: 058
  4. METHOTREXATE [Suspect]
     Indication: RHEUMATOID ARTHRITIS
     Route: 048
  5. METHOTREXATE [Suspect]
     Route: 048
  6. PLACEBO [Suspect]
     Indication: RHEUMATOID ARTHRITIS
     Route: 048
  7. FOLIC ACID [Concomitant]
     Route: 048
  8. CALTRATE [Concomitant]
     Route: 048
  9. ASPIRIN [Concomitant]
     Route: 048
  10. NOTEN [Concomitant]
     Route: 048
  11. TRITACE [Concomitant]
     Route: 048
  12. SOMAC [Concomitant]
     Route: 048
  13. STREPSILS [Concomitant]
     Route: 048
  14. METHOTREXATE [Concomitant]
     Route: 048
  15. ACYCLOVIR SODIUM [Concomitant]
     Route: 048
  16. AMOXICILLIN [Concomitant]
     Route: 048
  17. PREDNISOLONE [Concomitant]
     Route: 048
  18. MOBIC [Concomitant]
     Route: 048
  19. LIPITOR [Concomitant]
     Route: 048

REACTIONS (1)
  - MALIGNANT MELANOMA [None]
